FAERS Safety Report 6502091-0 (Version None)
Quarter: 2009Q4

REPORT INFORMATION
  Report Type: 
  Country: None (occurrence: None)
  Receive Date: 20091214
  Receipt Date: 20091208
  Transmission Date: 20100525
  Serious: Yes (Death, Other)
  Sender: FDA-Public Use
  Company Number: 2008SP018182

PATIENT
  Age: 66 Year
  Sex: Female

DRUGS (3)
  1. TEMODAL [Suspect]
     Indication: GLIOBLASTOMA
     Dosage: 75 MG/M2; QD; PO
     Route: 048
     Dates: start: 20070104, end: 20070212
  2. ZOFRAN [Concomitant]
  3. DEXAMETHASONE [Concomitant]

REACTIONS (1)
  - PULMONARY EMBOLISM [None]
